FAERS Safety Report 6486084-8 (Version None)
Quarter: 2009Q4

REPORT INFORMATION
  Report Type: 
  Country: None (occurrence: None)
  Receive Date: 20091207
  Receipt Date: 20091201
  Transmission Date: 20100525
  Serious: Yes (Death)
  Sender: FDA-Public Use
  Company Number: 2009029332

PATIENT

DRUGS (1)
  1. FENTORA [Suspect]
     Dosage: BU

REACTIONS (1)
  - PNEUMONIA [None]
